FAERS Safety Report 7890175-4 (Version None)
Quarter: 2011Q4

REPORT INFORMATION
  Report Type: 
  Country: None (occurrence: None)
  Receive Date: 20111103
  Receipt Date: 20111018
  Transmission Date: 20120403
  Serious: Yes (Hospitalization)
  Sender: FDA-Public Use
  Company Number: PHFR2011GB05800

PATIENT
  Sex: Female

DRUGS (1)
  1. CLOZARIL [Suspect]
     Indication: SCHIZOPHRENIA
     Route: 048
     Dates: start: 20110926, end: 20111018

REACTIONS (3)
  - RENAL IMPAIRMENT [None]
  - DIARRHOEA [None]
  - PNEUMONIA [None]
